FAERS Safety Report 23966619 (Version 1)
Quarter: 2024Q2

REPORT INFORMATION
  Report Type: Other
  Country: DE (occurrence: None)
  Receive Date: 20240612
  Receipt Date: 20240612
  Transmission Date: 20240716
  Serious: Yes (Death, Other)
  Sender: FDA-Public Use
  Company Number: DE-ROCHE-3577865

PATIENT

DRUGS (8)
  1. MYCOPHENOLATE MOFETIL [Suspect]
     Active Substance: MYCOPHENOLATE MOFETIL
     Indication: Pemphigus
     Route: 065
  2. MYCOPHENOLATE MOFETIL [Suspect]
     Active Substance: MYCOPHENOLATE MOFETIL
     Indication: Pemphigus
  3. PREDNISOLONE [Suspect]
     Active Substance: PREDNISOLONE
     Indication: Pemphigus
     Route: 065
  4. PREDNISOLONE [Suspect]
     Active Substance: PREDNISOLONE
     Indication: Pemphigus
  5. AZATHIOPRINE [Suspect]
     Active Substance: AZATHIOPRINE
     Indication: Pemphigus
     Dosage: 1.5-2.5 MG KG-1 PER DAY
     Route: 065
  6. AZATHIOPRINE [Suspect]
     Active Substance: AZATHIOPRINE
     Indication: Pemphigus
  7. MYCOPHENOLATE SODIUM [Suspect]
     Active Substance: MYCOPHENOLATE SODIUM
     Indication: Pemphigus
     Route: 065
  8. MYCOPHENOLATE SODIUM [Suspect]
     Active Substance: MYCOPHENOLATE SODIUM
     Indication: Pemphigus

REACTIONS (126)
  - Sudden death [Fatal]
  - Endocarditis [Unknown]
  - Sepsis [Unknown]
  - Circulatory collapse [Unknown]
  - Brain stem haemorrhage [Unknown]
  - Cardiac failure [Unknown]
  - Anaemia [Unknown]
  - Leukocytosis [Unknown]
  - Lymphadenopathy [Unknown]
  - Thrombocytopenia [Unknown]
  - Atrial fibrillation [Unknown]
  - Palpitations [Unknown]
  - Tachycardia [Unknown]
  - Ear pain [Unknown]
  - Cushing^s syndrome [Unknown]
  - Refraction disorder [Unknown]
  - Abdominal pain [Unknown]
  - Constipation [Unknown]
  - Diverticulum intestinal [Unknown]
  - Gastric polyps [Unknown]
  - Gastritis [Unknown]
  - Gastritis haemorrhagic [Unknown]
  - Gingival bleeding [Unknown]
  - Nausea [Unknown]
  - Stomatitis [Unknown]
  - Toothache [Unknown]
  - Vomiting [Unknown]
  - Catheter site swelling [Unknown]
  - Condition aggravated [Unknown]
  - Disease progression [Unknown]
  - Fatigue [Unknown]
  - General physical health deterioration [Unknown]
  - Swelling [Unknown]
  - Oedema peripheral [Unknown]
  - Pyrexia [Unknown]
  - Abscess bacterial [Unknown]
  - Atypical pneumonia [Unknown]
  - Bacterial infection [Unknown]
  - Clostridium difficile colitis [Unknown]
  - Cystitis [Unknown]
  - Erysipelas [Unknown]
  - Febrile infection [Unknown]
  - Gastrointestinal candidiasis [Unknown]
  - Gastrointestinal infection [Unknown]
  - Herpes simplex [Unknown]
  - Infection [Unknown]
  - Influenza [Unknown]
  - Nasopharyngitis [Unknown]
  - Oral candidiasis [Unknown]
  - Oral herpes [Unknown]
  - Paronychia [Unknown]
  - Pneumonia [Unknown]
  - Pulpitis dental [Unknown]
  - Rhinitis [Unknown]
  - Tinea capitis [Unknown]
  - Tinea pedis [Unknown]
  - Upper respiratory tract infection [Unknown]
  - Urinary tract infection [Unknown]
  - Viral infection [Unknown]
  - Clavicle fracture [Unknown]
  - Contusion [Unknown]
  - Lumbar vertebral fracture [Unknown]
  - Muscle rupture [Unknown]
  - Rib fracture [Unknown]
  - Tendon rupture [Unknown]
  - Alanine aminotransferase increased [Unknown]
  - Aspartate aminotransferase increased [Unknown]
  - Bacterial test positive [Unknown]
  - Blood creatinine increased [Unknown]
  - Blood lactate dehydrogenase increased [Unknown]
  - Body temperature increased [Unknown]
  - Crystal urine [Unknown]
  - Crystal urine present [Unknown]
  - Fungal test positive [Unknown]
  - Gamma-glutamyltransferase increased [Unknown]
  - Glucose urine [Unknown]
  - Glycosylated haemoglobin increased [Unknown]
  - International normalised ratio decreased [Unknown]
  - Neutrophil count increased [Unknown]
  - Protein urine present [Unknown]
  - Transaminases increased [Unknown]
  - Weight increased [Unknown]
  - White blood cell count increased [Unknown]
  - Dehydration [Unknown]
  - Diabetes mellitus [Unknown]
  - Hypercholesterolaemia [Unknown]
  - Hyperglycaemia [Unknown]
  - Hypokalaemia [Unknown]
  - Iron deficiency [Unknown]
  - Arthralgia [Unknown]
  - Arthropathy [Unknown]
  - Back pain [Unknown]
  - Costochondritis [Unknown]
  - Groin pain [Unknown]
  - Myalgia [Unknown]
  - Pain in extremity [Unknown]
  - Dizziness [Unknown]
  - Dysgeusia [Unknown]
  - Headache [Unknown]
  - Multiple sclerosis [Unknown]
  - Muscle contractions involuntary [Unknown]
  - Tremor [Unknown]
  - Depressed mood [Unknown]
  - Depression [Unknown]
  - Mood swings [Unknown]
  - Sleep disorder [Unknown]
  - Glycosuria [Unknown]
  - Haematuria [Unknown]
  - Ketonuria [Unknown]
  - Leukocyturia [Unknown]
  - Nephrolithiasis [Unknown]
  - Urinary tract disorder [Unknown]
  - Cough [Unknown]
  - Dyspnoea [Unknown]
  - Oropharyngeal pain [Unknown]
  - Acne [Unknown]
  - Alopecia [Unknown]
  - Blister [Unknown]
  - Eczema [Unknown]
  - Rosacea [Unknown]
  - Diastolic hypertension [Unknown]
  - Embolism venous [Unknown]
  - Haematoma [Unknown]
  - Hot flush [Unknown]
  - Hypertension [Unknown]
  - Hypotension [Unknown]
